FAERS Safety Report 4968646-X (Version None)
Quarter: 2006Q2

REPORT INFORMATION
  Report Type: 
  Country: None (occurrence: None)
  Receive Date: 20060411
  Receipt Date: 20060403
  Transmission Date: 20061013
  Serious: Yes (Other)
  Sender: FDA-Public Use
  Company Number: PHNR2006AU00652

PATIENT
  Age: 7 Year
  Sex: Male

DRUGS (1)
  1. RITALIN [Suspect]

REACTIONS (3)
  - DEPRESSION [None]
  - PSYCHOTIC DISORDER [None]
  - SUICIDE ATTEMPT [None]
